FAERS Safety Report 9849363 (Version 1)
Quarter: 2014Q1

REPORT INFORMATION
  Report Type: Spontaneous
  Country: CH (occurrence: CH)
  Receive Date: 20140128
  Receipt Date: 20140128
  Transmission Date: 20141002
  Serious: Yes (Hospitalization, Other)
  Sender: FDA-Public Use
  Company Number: CH-AMGEN-CHESP2014004789

PATIENT
  Age: 61 Year
  Sex: Female
  Weight: 64 kg

DRUGS (1)
  1. PROLIA [Suspect]
     Indication: OSTEOPOROSIS
     Dosage: 60 MG, UNK
     Route: 058
     Dates: start: 20130930

REACTIONS (7)
  - Photosensitivity reaction [Unknown]
  - Nausea [Unknown]
  - Vertigo [Unknown]
  - Flatulence [Unknown]
  - Lymphangitis [Unknown]
  - Eczema [Unknown]
  - Pain in extremity [Unknown]
